FAERS Safety Report 24814238 (Version 1)
Quarter: 2025Q1

REPORT INFORMATION
  Report Type: Spontaneous
  Country: US (occurrence: None)
  Receive Date: 20250106
  Receipt Date: 20250106
  Transmission Date: 20250409
  Serious: No
  Sender: FDA-CTU
  Company Number: None

PATIENT
  Sex: Male

DRUGS (19)
  1. AMBRISENTAN [Suspect]
     Active Substance: AMBRISENTAN
     Indication: Pulmonary arterial hypertension
     Dosage: FREQUENCY : DAILY;?
     Route: 048
  2. PRIMIDONE [Concomitant]
     Active Substance: PRIMIDONE
  3. PRAVASTATIN SODIUM [Concomitant]
     Active Substance: PRAVASTATIN SODIUM
  4. FENOFIBRATE [Concomitant]
     Active Substance: FENOFIBRATE
  5. DOXEPIN HYDROCHLORIDE [Concomitant]
     Active Substance: DOXEPIN HYDROCHLORIDE
  6. GABAPENTIN [Concomitant]
     Active Substance: GABAPENTIN
  7. CITALOPRAM HYDROBROMIDE [Concomitant]
     Active Substance: CITALOPRAM HYDROBROMIDE
  8. AVODART [Concomitant]
     Active Substance: DUTASTERIDE
  9. TYLENOL [Concomitant]
     Active Substance: ACETAMINOPHEN
  10. LEVEMIR [Concomitant]
     Active Substance: INSULIN DETEMIR
  11. DIAZEPAM [Concomitant]
     Active Substance: DIAZEPAM
  12. ELIQUIS [Concomitant]
     Active Substance: APIXABAN
  13. METOPROLOL TARTRATE [Concomitant]
     Active Substance: METOPROLOL TARTRATE
  14. SPIRONOLACTONE [Concomitant]
     Active Substance: SPIRONOLACTONE
  15. POTASSIUM [Concomitant]
     Active Substance: POTASSIUM
  16. VITAMIN D [Concomitant]
     Active Substance: VITAMIN D NOS
  17. BUMEX [Concomitant]
     Active Substance: BUMETANIDE
  18. FAMOTIDINE [Concomitant]
     Active Substance: FAMOTIDINE
  19. MAGNESIUM [Concomitant]
     Active Substance: MAGNESIUM

REACTIONS (1)
  - Dyspnoea [None]
